FAERS Safety Report 20694202 (Version 1)
Quarter: 2022Q2

REPORT INFORMATION
  Report Type: Spontaneous
  Country: SK (occurrence: SK)
  Receive Date: 20220411
  Receipt Date: 20220411
  Transmission Date: 20220721
  Serious: Yes (Hospitalization, Other)
  Sender: FDA-Public Use
  Company Number: SK-LUPIN PHARMACEUTICALS INC.-2022-05056

PATIENT
  Age: 50 Year
  Sex: Female
  Weight: 100 kg

DRUGS (12)
  1. HYDROCORTISONE [Suspect]
     Active Substance: HYDROCORTISONE
     Indication: Product used for unknown indication
     Dosage: UNK
     Route: 065
  2. CETIRIZINE [Suspect]
     Active Substance: CETIRIZINE HYDROCHLORIDE
     Indication: Product used for unknown indication
     Dosage: UNK
     Route: 065
  3. IVERMECTIN [Suspect]
     Active Substance: IVERMECTIN
     Indication: COVID-19
     Dosage: 3 MG, TID (5 TABLETS OF 3 MG IVERMECTIN EVERY 8 H (TOTAL 45 MG/DAY))
     Route: 048
  4. IVERMECTIN [Suspect]
     Active Substance: IVERMECTIN
     Dosage: UNK (IV VETERINARY IVERMECTIN 20MG/2ML INFUSION FROM A 20ML VIAL CONTAINING CONCENTRATION OF 10MG/1M
     Route: 042
  5. OFLOXACIN [Suspect]
     Active Substance: OFLOXACIN
     Indication: Product used for unknown indication
     Dosage: UNK
     Route: 065
  6. DEXAMETHASONE [Concomitant]
     Active Substance: DEXAMETHASONE
     Indication: COVID-19 pneumonia
     Dosage: UNK
     Route: 065
  7. ACETYLCYSTEINE [Concomitant]
     Active Substance: ACETYLCYSTEINE
     Indication: COVID-19 pneumonia
     Dosage: UNK
     Route: 065
  8. VITAMIN C [Concomitant]
     Active Substance: ASCORBIC ACID
     Indication: COVID-19 pneumonia
     Dosage: UNK
     Route: 065
  9. POLYOXIDONIUM [Concomitant]
     Indication: COVID-19 pneumonia
     Dosage: UNK
     Route: 065
  10. DIETARY SUPPLEMENT\HERBALS\MILK THISTLE [Concomitant]
     Active Substance: DIETARY SUPPLEMENT\HERBALS\MILK THISTLE
     Indication: COVID-19 pneumonia
     Dosage: UNK
     Route: 065
  11. BISULEPIN [Concomitant]
     Active Substance: BISULEPIN
     Indication: COVID-19 pneumonia
     Dosage: UNK
     Route: 065
  12. VITAMIN D [Concomitant]
     Active Substance: VITAMIN D NOS
     Indication: COVID-19 pneumonia
     Dosage: UNK
     Route: 065

REACTIONS (11)
  - Neurotoxicity [Recovering/Resolving]
  - Unresponsive to stimuli [Recovering/Resolving]
  - Quadriparesis [Recovering/Resolving]
  - Urinary incontinence [Recovering/Resolving]
  - Mental disorder [Recovering/Resolving]
  - Myoclonus [Recovering/Resolving]
  - Extrapyramidal disorder [Recovering/Resolving]
  - Salivary hypersecretion [Recovering/Resolving]
  - Mydriasis [Recovering/Resolving]
  - Vertigo [Recovering/Resolving]
  - Drug interaction [Unknown]
